FAERS Safety Report 15356590 (Version 1)
Quarter: 2018Q3

REPORT INFORMATION
  Report Type: Spontaneous
  Country: US (occurrence: US)
  Receive Date: 20180906
  Receipt Date: 20180906
  Transmission Date: 20181010
  Serious: Yes (Other)
  Sender: FDA-Public Use
  Company Number: US-SA-2018SA227559

PATIENT
  Age: 64 Year
  Sex: Female

DRUGS (1)
  1. TOUJEO [Suspect]
     Active Substance: INSULIN GLARGINE
     Indication: TYPE 2 DIABETES MELLITUS
     Dosage: UNK UNK, UNK

REACTIONS (5)
  - Swelling [Unknown]
  - Limb operation [Unknown]
  - Arthralgia [Unknown]
  - Diabetic retinopathy [Unknown]
  - Reading disorder [Unknown]

NARRATIVE: CASE EVENT DATE: 201712
